FAERS Safety Report 9220971 (Version 1)
Quarter: 2013Q2

REPORT INFORMATION
  Report Type: Spontaneous
  Country: IN (occurrence: IN)
  Receive Date: 20130409
  Receipt Date: 20130409
  Transmission Date: 20140414
  Serious: Yes (Hospitalization, Other)
  Sender: FDA-Public Use
  Company Number: PHHY2013IN033050

PATIENT
  Age: 18 Year
  Sex: Male

DRUGS (4)
  1. OLANZAPINE [Suspect]
     Dosage: 10 MG, UNK
  2. OLANZAPINE [Suspect]
     Dosage: 20 MG, UNK
  3. ARIPIPRAZOLE [Concomitant]
     Dosage: 15 MG, BID
  4. SERTRALINE [Concomitant]
     Dosage: 100 MG, UNK

REACTIONS (10)
  - Neuroleptic malignant syndrome [Recovered/Resolved]
  - Tremor [Recovered/Resolved]
  - Muscle rigidity [Recovered/Resolved]
  - Mutism [Recovered/Resolved]
  - Altered state of consciousness [Recovered/Resolved]
  - Hypokinesia [Recovered/Resolved]
  - Pyrexia [Recovered/Resolved]
  - Hyperhidrosis [Recovered/Resolved]
  - Blood pressure fluctuation [Recovered/Resolved]
  - Tuberculosis [Unknown]
